FAERS Safety Report 10228539 (Version 1)
Quarter: 2014Q2

REPORT INFORMATION
  Report Type: Spontaneous
  Country: FR (occurrence: FR)
  Receive Date: 20140610
  Receipt Date: 20140610
  Transmission Date: 20141212
  Serious: Yes (Life-Threatening)
  Sender: FDA-Public Use
  Company Number: FR-BRISTOL-MYERS SQUIBB COMPANY-20962320

PATIENT
  Age: 65 Year
  Sex: Female
  Weight: 67 kg

DRUGS (6)
  1. GLUCOPHAGE TABS 850 MG [Suspect]
     Indication: TYPE 2 DIABETES MELLITUS
     Route: 048
     Dates: start: 20140328, end: 20140413
  2. TRIATEC [Concomitant]
     Dosage: CAPSULE
     Route: 048
     Dates: start: 20140328, end: 20140413
  3. LASILIX [Concomitant]
     Indication: HYPERTENSION
     Dosage: SCORED TABLET
     Route: 048
     Dates: start: 20140328, end: 20140413
  4. KALEORID [Concomitant]
     Indication: HYPERTENSION
     Dosage: EXTENDED RELEASE TABLET
     Route: 048
     Dates: start: 20140328, end: 20140413
  5. BISOPROLOL FUMARATE [Concomitant]
     Indication: HYPERTENSION
     Dosage: FILM COATED TABLET
     Route: 048
     Dates: start: 20140328, end: 20140413
  6. ALDACTONE [Concomitant]
     Indication: HYPERTENSION
     Dosage: TABLET AT 0.5 DOSAGE FORM
     Route: 048
     Dates: start: 20140328, end: 20140413

REACTIONS (3)
  - Secondary adrenocortical insufficiency [Recovered/Resolved]
  - Lactic acidosis [Recovered/Resolved]
  - Renal failure acute [Recovered/Resolved]
